FAERS Safety Report 5178919-6 (Version None)
Quarter: 2006Q4

REPORT INFORMATION
  Report Type: 
  Country: None (occurrence: None)
  Receive Date: 20061213
  Receipt Date: 20061213
  Transmission Date: 20070319
  Serious: Yes (Hospitalization)
  Sender: FDA-Public Use
  Company Number: None

PATIENT
  Age: 76 Year
  Sex: Male
  Weight: 81.3 kg

DRUGS (2)
  1. METOPROLOL SUCCINATE [Suspect]
     Indication: ATRIAL FIBRILLATION
     Dosage: 12.5MG  BID PO
     Route: 048
  2. METOPROLOL SUCCINATE [Suspect]
     Indication: HYPERTENSION
     Dosage: 12.5MG  BID PO
     Route: 048

REACTIONS (5)
  - BRADYCARDIA [None]
  - CARDIAC DISORDER [None]
  - HYPOTENSION [None]
  - MITRAL VALVE INCOMPETENCE [None]
  - SYNCOPE [None]
